FAERS Safety Report 13990237 (Version 1)
Quarter: 2017Q3

REPORT INFORMATION
  Report Type: Spontaneous
  Country: JP (occurrence: JP)
  Receive Date: 20170920
  Receipt Date: 20170920
  Transmission Date: 20171128
  Serious: Yes (Hospitalization, Other)
  Sender: FDA-Public Use
  Company Number: JP-GLAXOSMITHKLINE-JP2017JPN142936

PATIENT
  Age: 85 Year
  Sex: Male

DRUGS (4)
  1. AVOLVE [Suspect]
     Active Substance: DUTASTERIDE
     Indication: BENIGN PROSTATIC HYPERPLASIA
     Dosage: UNK
     Route: 048
  2. CILNIDIPINE [Concomitant]
     Active Substance: CILNIDIPINE
     Dosage: UNK
  3. URIEF [Concomitant]
     Active Substance: SILODOSIN
     Dosage: UNK
  4. TEARBALANCE [Concomitant]
     Active Substance: HYALURONATE SODIUM
     Dosage: UNK

REACTIONS (2)
  - Bladder mass [Unknown]
  - Dyspepsia [Recovering/Resolving]
